FAERS Safety Report 9380344 (Version 1)
Quarter: 2013Q3

REPORT INFORMATION
  Report Type: Report from Study
  Country: US (occurrence: US)
  Receive Date: 20130702
  Receipt Date: 20130702
  Transmission Date: 20140515
  Serious: Yes (Other)
  Sender: FDA-Public Use
  Company Number: US-GLAXOSMITHKLINE-A1029278A

PATIENT
  Sex: Female

DRUGS (1)
  1. PAZOPANIB [Suspect]
     Indication: MEDULLARY THYROID CANCER
     Dosage: 800MG PER DAY
     Route: 067
     Dates: start: 20080926

REACTIONS (3)
  - Abortion spontaneous [Unknown]
  - Exposure via body fluid [Unknown]
  - Unintended pregnancy [Unknown]
